FAERS Safety Report 5447505-2 (Version None)
Quarter: 2007Q3

REPORT INFORMATION
  Report Type: 
  Country: None (occurrence: None)
  Receive Date: 20070910
  Receipt Date: 20070905
  Transmission Date: 20080115
  Serious: Yes (Death)
  Sender: FDA-Public Use
  Company Number: B0484554A

PATIENT
  Age: 47 Year
  Sex: Male
  Weight: 91 kg

DRUGS (10)
  1. CEFAZOLIN [Suspect]
     Indication: ABSCESS
     Dosage: 1G PER DAY
     Route: 042
     Dates: start: 20070818, end: 20070818
  2. EPOGEN [Concomitant]
     Indication: DRUG USE FOR UNKNOWN INDICATION
     Route: 065
     Dates: start: 20070702
  3. PARNAPARIN SODIUM [Concomitant]
     Route: 065
     Dates: start: 20070702
  4. D-ALFA [Concomitant]
     Dosage: .5UG PER DAY
     Dates: start: 20040906, end: 20070818
  5. ADALAT [Concomitant]
     Dosage: 40MG PER DAY
     Dates: start: 20050624, end: 20070818
  6. DIOVAN [Concomitant]
     Dosage: 160MG PER DAY
     Dates: start: 20050425, end: 20070818
  7. BAYNAS [Concomitant]
     Dosage: 150MG PER DAY
     Dates: start: 20070717, end: 20070818
  8. TICLOPIDINE HYDROCHLORIDE [Concomitant]
     Dosage: 200MG PER DAY
     Route: 065
     Dates: start: 20070807, end: 20070818
  9. SODIUM CHLORIDE 0.9% [Concomitant]
     Dates: start: 20070818
  10. MEYLON [Concomitant]

REACTIONS (8)
  - ANAPHYLACTIC SHOCK [None]
  - BLOOD PRESSURE ABNORMAL [None]
  - CARDIO-RESPIRATORY ARREST [None]
  - COUGH [None]
  - ERYTHEMA [None]
  - HEART RATE DECREASED [None]
  - RESPIRATION ABNORMAL [None]
  - WHEEZING [None]
